FAERS Safety Report 6684524-2 (Version None)
Quarter: 2010Q2

REPORT INFORMATION
  Report Type: 
  Country: None (occurrence: None)
  Receive Date: 20100416
  Receipt Date: 20100408
  Transmission Date: 20101027
  Serious: Yes (Other)
  Sender: FDA-Public Use
  Company Number: US-ROCHE-690961

PATIENT
  Sex: Female
  Weight: 58.5 kg

DRUGS (22)
  1. BONIVA [Suspect]
     Indication: OSTEOPENIA
     Route: 048
     Dates: start: 20061112
  2. METHOTREXATE [Concomitant]
  3. TRAZODONE [Concomitant]
     Dosage: AT BEDTIME
  4. PREDNISONE [Concomitant]
  5. PROZAC [Concomitant]
  6. TRANXENE [Concomitant]
  7. FIORINAL [Concomitant]
  8. FLONASE [Concomitant]
     Dosage: ADMINISTERED AS NASAL SPRAY; TAKES EVERY NIGHT
  9. AMITIZA [Concomitant]
  10. FOLIC ACID [Concomitant]
  11. ASMANEX TWISTHALER [Concomitant]
  12. NOVOLOG [Concomitant]
  13. SINGULAIR [Concomitant]
  14. PLAQUENIL [Concomitant]
     Dosage: ADMINISTERED AS 11/2 TABLETS DAILY
  15. EXCEDRIN (MIGRAINE) [Concomitant]
  16. BIOTIN [Concomitant]
  17. VITAMIN E [Concomitant]
  18. CENTRUM SILVER [Concomitant]
  19. ALKA-SELTZER [Concomitant]
  20. OPANA [Concomitant]
     Dosage: 1/2 TABLET BEFORE BEDTIME
  21. OXYCODONE HCL [Concomitant]
     Dosage: ONE TABLET IN MORNING
  22. VOLTAREN [Concomitant]
     Dosage: AS NEEDED.

REACTIONS (1)
  - BONE DISORDER [None]
